FAERS Safety Report 11518894 (Version 1)
Quarter: 2015Q3

REPORT INFORMATION
  Report Type: Spontaneous
  Country: US (occurrence: US)
  Receive Date: 20150917
  Receipt Date: 20150917
  Transmission Date: 20151125
  Serious: Yes (Hospitalization)
  Sender: FDA-Public Use
  Company Number: PHHY2015US110076

PATIENT
  Age: 15 Month
  Sex: Female

DRUGS (1)
  1. BUPROPION. [Suspect]
     Active Substance: BUPROPION
     Indication: PRODUCT USED FOR UNKNOWN INDICATION
     Route: 065

REACTIONS (4)
  - Status epilepticus [Not Recovered/Not Resolved]
  - Accidental overdose [Unknown]
  - Hypoxic-ischaemic encephalopathy [Unknown]
  - Cardio-respiratory arrest [Unknown]
